FAERS Safety Report 19065024 (Version 1)
Quarter: 2021Q1

REPORT INFORMATION
  Report Type: Spontaneous
  Country: BR (occurrence: BR)
  Receive Date: 20210326
  Receipt Date: 20210326
  Transmission Date: 20210420
  Serious: Yes (Other)
  Sender: FDA-Public Use
  Company Number: BR-ASTRAZENECA-2021A177051

PATIENT
  Age: 740 Month
  Sex: Female

DRUGS (5)
  1. TREZETE [Concomitant]
     Dosage: 20/10 MG
     Route: 065
  2. PRISTIQ EXTENDED?RELEASE [Concomitant]
     Active Substance: DESVENLAFAXINE SUCCINATE
     Route: 065
  3. XIGDUO XR [Suspect]
     Active Substance: DAPAGLIFLOZIN PROPANEDIOL\METFORMIN HYDROCHLORIDE
     Indication: DIABETES MELLITUS
     Dosage: 10/1000 MG, UNKNOWN DOSE AND FREQUENCY UNKNOWN
     Route: 048
     Dates: end: 20210311
  4. LEVOTHYROXINE SODIUM. [Concomitant]
     Active Substance: LEVOTHYROXINE SODIUM
     Dosage: 50.0MG UNKNOWN
     Route: 065
  5. DONAREN [Concomitant]
     Active Substance: TRAZODONE HYDROCHLORIDE
     Dosage: 25.0MG UNKNOWN
     Route: 065

REACTIONS (4)
  - Klebsiella infection [Unknown]
  - Urinary tract infection [Unknown]
  - COVID-19 [Recovered/Resolved]
  - Candida infection [Unknown]

NARRATIVE: CASE EVENT DATE: 202007
